FAERS Safety Report 7445187-1 (Version None)
Quarter: 2011Q2

REPORT INFORMATION
  Report Type: 
  Country: None (occurrence: None)
  Receive Date: 20110429
  Receipt Date: 20110419
  Transmission Date: 20111010
  Serious: Yes (Hospitalization)
  Sender: FDA-Public Use
  Company Number: CA-JNJFOC-20110409369

PATIENT
  Sex: Female

DRUGS (12)
  1. SIMPONI [Suspect]
     Indication: PRODUCT USED FOR UNKNOWN INDICATION
     Route: 058
  2. PLAQUENIL [Concomitant]
  3. BACLOFEN [Concomitant]
  4. VENTOLIN [Concomitant]
  5. ADVAIR DISKUS 100/50 [Concomitant]
  6. SULPHASALAZINE [Concomitant]
  7. ATROVENT [Concomitant]
  8. MORPHINE [Concomitant]
  9. ESTROGENIC SUBSTANCE [Concomitant]
  10. CELEBREX [Concomitant]
  11. PREDNISONE [Concomitant]
  12. GABAPENTIN [Concomitant]

REACTIONS (1)
  - HOSPITALISATION [None]
